FAERS Safety Report 7152604-3 (Version None)
Quarter: 2010Q4

REPORT INFORMATION
  Report Type: 
  Country: None (occurrence: None)
  Receive Date: 20101213
  Receipt Date: 20101202
  Transmission Date: 20110411
  Serious: No
  Sender: FDA-Public Use
  Company Number: US-JNJFOC-20101202318

PATIENT
  Sex: Female

DRUGS (4)
  1. SANDOZ FENTANYL TRANSDERMAL SYSTEM [Suspect]
     Indication: PAIN
     Dosage: NDC #0781-7241-55
     Route: 062
  2. SYNTHROID [Concomitant]
     Indication: HYPOTHYROIDISM
     Route: 048
  3. FLUVOXAMINE MALEATE [Concomitant]
     Indication: DEPRESSION
     Dosage: IN THE MORNING
     Route: 048
  4. TRILEPTAL [Concomitant]
     Indication: DEPRESSION
     Route: 048

REACTIONS (3)
  - PRODUCT ADHESION ISSUE [None]
  - PRODUCT QUALITY ISSUE [None]
  - WRONG TECHNIQUE IN DRUG USAGE PROCESS [None]
